FAERS Safety Report 24432505 (Version 1)
Quarter: 2024Q4

REPORT INFORMATION
  Report Type: Spontaneous
  Country: US (occurrence: US)
  Receive Date: 20241014
  Receipt Date: 20241014
  Transmission Date: 20250115
  Serious: Yes (Death, Hospitalization)
  Sender: BIOCODEX
  Company Number: US-BIOCODEX2-201901266

PATIENT
  Age: 14 Year
  Sex: Male
  Weight: 54.4 kg

DRUGS (1)
  1. DIACOMIT [Suspect]
     Active Substance: STIRIPENTOL
     Indication: Product used for unknown indication
     Dosage: AT 250MG IN THE MORNING AND 500MG ON THE EVENING
     Route: 065
     Dates: start: 20190521, end: 20191010

REACTIONS (2)
  - Seizure [Unknown]
  - Death [Fatal]

NARRATIVE: CASE EVENT DATE: 20191001
